FAERS Safety Report 6636553-2 (Version None)
Quarter: 2010Q1

REPORT INFORMATION
  Report Type: 
  Country: None (occurrence: None)
  Receive Date: 20100316
  Receipt Date: 20100302
  Transmission Date: 20100710
  Serious: Yes (Disabling, Other)
  Sender: FDA-Public Use
  Company Number: FR-GENENTECH-299182

PATIENT
  Sex: Male
  Weight: 72 kg

DRUGS (15)
  1. XOLAIR [Suspect]
     Indication: ASTHMA
     Dosage: 150 MG, 1/MONTH
     Route: 058
     Dates: start: 20060816, end: 20070901
  2. XOLAIR [Suspect]
     Dosage: 300 MG, Q6W
     Dates: start: 20070901, end: 20090601
  3. XOLAIR [Suspect]
     Dosage: 300 MG, Q6W
     Dates: start: 20090601, end: 20100101
  4. PAROXETINE HCL [Suspect]
     Indication: DEPRESSION
     Dosage: 20 MG, QD
     Route: 048
     Dates: start: 20060101
  5. ROWASA [Concomitant]
     Indication: DRUG USE FOR UNKNOWN INDICATION
     Dosage: UNK
     Dates: start: 20070701
  6. DI-ANTALVIC [Concomitant]
     Indication: DRUG USE FOR UNKNOWN INDICATION
  7. NASONEX [Concomitant]
     Indication: DRUG USE FOR UNKNOWN INDICATION
  8. AERIUS [Concomitant]
     Indication: DRUG USE FOR UNKNOWN INDICATION
  9. SERETIDE DISKUS [Concomitant]
     Indication: DRUG USE FOR UNKNOWN INDICATION
  10. CORTICOSTEROID NOS [Concomitant]
     Indication: DRUG USE FOR UNKNOWN INDICATION
  11. SOLUPRED [Concomitant]
     Indication: DRUG USE FOR UNKNOWN INDICATION
  12. OROCAL D3 [Concomitant]
     Indication: DRUG USE FOR UNKNOWN INDICATION
  13. VENTOLIN [Concomitant]
     Indication: DRUG USE FOR UNKNOWN INDICATION
  14. ATROVENT [Concomitant]
     Indication: DRUG USE FOR UNKNOWN INDICATION
  15. SINGULAIR [Concomitant]
     Indication: DRUG USE FOR UNKNOWN INDICATION

REACTIONS (10)
  - ASTHENIA [None]
  - ASTHMA [None]
  - DISABILITY [None]
  - FATIGUE [None]
  - INFLUENZA LIKE ILLNESS [None]
  - MUSCLE ATROPHY [None]
  - MUSCULAR WEAKNESS [None]
  - MYALGIA [None]
  - MYOSITIS [None]
  - OXYGEN SATURATION DECREASED [None]
